FAERS Safety Report 7913849-5 (Version None)
Quarter: 2011Q4

REPORT INFORMATION
  Report Type: 
  Country: None (occurrence: None)
  Receive Date: 20111110
  Receipt Date: 20111102
  Transmission Date: 20120403
  Serious: Yes (Hospitalization, Other)
  Sender: FDA-Public Use
  Company Number: 2010SP019147

PATIENT
  Age: 24 Year
  Sex: Female
  Weight: 89.8122 kg

DRUGS (2)
  1. NUVARING [Suspect]
     Indication: CONTRACEPTION
     Dosage: VAG
     Route: 067
     Dates: start: 20060101, end: 20090101
  2. ADDERALL 5 [Concomitant]

REACTIONS (7)
  - VISUAL ACUITY REDUCED [None]
  - VISUAL FIELD DEFECT [None]
  - MIGRAINE [None]
  - VASCULITIS [None]
  - CEREBROVASCULAR ACCIDENT [None]
  - PAPILLOEDEMA [None]
  - DEMYELINATION [None]
